FAERS Safety Report 25894559 (Version 1)
Quarter: 2025Q4

REPORT INFORMATION
  Report Type: Spontaneous
  Country: EU (occurrence: EU)
  Receive Date: 20251008
  Receipt Date: 20251008
  Transmission Date: 20260117
  Serious: Yes (Life-Threatening, Hospitalization)
  Sender: ZYDUS PHARM
  Company Number: EU-MLMSERVICE-20250918-PI649761-00029-1

PATIENT

DRUGS (1)
  1. ACETAMINOPHEN [Suspect]
     Active Substance: ACETAMINOPHEN
     Indication: Suicide attempt
     Dosage: 56 GRAM
     Route: 048

REACTIONS (6)
  - Hypothermia [Unknown]
  - Lactic acidosis [Unknown]
  - Loss of consciousness [Unknown]
  - Toxicity to various agents [Unknown]
  - Renal impairment [Unknown]
  - Intentional overdose [Unknown]
